FAERS Safety Report 12258033 (Version 1)
Quarter: 2016Q2

REPORT INFORMATION
  Report Type: Report from Study
  Country: US (occurrence: US)
  Receive Date: 20160412
  Receipt Date: 20160412
  Transmission Date: 20160815
  Serious: Yes (Death, Life-Threatening, Hospitalization, Other)
  Sender: FDA-Public Use
  Company Number: US-GILEAD-2015-0154353

PATIENT
  Age: 70 Year
  Sex: Female
  Weight: 78 kg

DRUGS (43)
  1. BENDAMUSTINE [Suspect]
     Active Substance: BENDAMUSTINE
     Dosage: 185 MG, UNK
     Route: 042
     Dates: start: 20150401, end: 20150401
  2. RITUXIMAB [Suspect]
     Active Substance: RITUXIMAB
     Indication: CHRONIC LYMPHOCYTIC LEUKAEMIA
     Dosage: 700 MG, UNK
     Route: 042
     Dates: start: 20150304, end: 20150304
  3. BUSPIRONE [Concomitant]
     Active Substance: BUSPIRONE HYDROCHLORIDE
     Indication: DEPRESSION
     Dosage: 15 MG, QD
     Route: 048
     Dates: start: 2010
  4. LEXAPRO [Concomitant]
     Active Substance: ESCITALOPRAM OXALATE
     Indication: DEPRESSION
     Dosage: 10 MG, QD
     Route: 048
     Dates: start: 2010
  5. SUMATRIPTAN. [Concomitant]
     Active Substance: SUMATRIPTAN
     Indication: MIGRAINE
     Dosage: 50 MG, PRN
     Dates: start: 2012
  6. TOPIRAMATE. [Concomitant]
     Active Substance: TOPIRAMATE
     Dosage: 50 MG, QD
     Route: 048
     Dates: start: 199908
  7. TRICOR                             /00499301/ [Concomitant]
     Indication: HYPERLIPIDAEMIA
  8. BENDAMUSTINE [Suspect]
     Active Substance: BENDAMUSTINE
     Indication: CHRONIC LYMPHOCYTIC LEUKAEMIA
     Route: 042
     Dates: start: 20150304, end: 20150304
  9. BENDAMUSTINE [Suspect]
     Active Substance: BENDAMUSTINE
     Dosage: 185 MG, UNK
     Route: 042
     Dates: start: 20150331, end: 20150331
  10. VITAMIN B12 [Concomitant]
     Active Substance: CYANOCOBALAMIN
     Indication: NUTRITIONAL SUPPLEMENTATION
     Dosage: 500 MG, QD
     Route: 065
     Dates: start: 2010
  11. MECLIZINE [Concomitant]
     Active Substance: MECLIZINE HYDROCHLORIDE
     Indication: NAUSEA
  12. DIOVAN [Concomitant]
     Active Substance: VALSARTAN
     Route: 048
     Dates: start: 2005
  13. INJECTAFER [Concomitant]
     Active Substance: FERRIC CARBOXYMALTOSE
     Route: 042
     Dates: start: 20150505, end: 20150505
  14. NASONEX [Concomitant]
     Active Substance: MOMETASONE FUROATE
     Indication: NASAL CONGESTION
     Dosage: 50 UG, PRN
     Route: 055
     Dates: start: 2012
  15. IRON [Concomitant]
     Active Substance: IRON
     Indication: ANAEMIA
     Dosage: 65 MG, TID
     Dates: start: 20140115, end: 20140323
  16. COPPER [Concomitant]
     Active Substance: COPPER
     Route: 048
     Dates: start: 20150115
  17. MAGNESIUM [Concomitant]
     Active Substance: MAGNESIUM
     Indication: CONSTIPATION PROPHYLAXIS
     Dosage: 500 MG, QD
     Route: 048
     Dates: start: 2010
  18. PREDNISONE. [Concomitant]
     Active Substance: PREDNISONE
     Indication: ANAEMIA
     Dosage: 20 MG, QD
     Route: 048
     Dates: start: 20150217
  19. RITUXIMAB [Suspect]
     Active Substance: RITUXIMAB
     Dosage: 915 MG, UNK
     Route: 042
     Dates: start: 20150331, end: 20150331
  20. CRANBERRY                          /01512301/ [Concomitant]
     Active Substance: CRANBERRY
     Indication: NUTRITIONAL SUPPLEMENTATION
     Dosage: UNK
     Route: 065
     Dates: start: 2010
  21. VITAMIN D [Concomitant]
     Active Substance: CHOLECALCIFEROL
     Indication: NUTRITIONAL SUPPLEMENTATION
     Dosage: 400 IU, QD
     Route: 048
     Dates: start: 2012
  22. TRICOR                             /00499301/ [Concomitant]
     Indication: BLOOD CHOLESTEROL INCREASED
     Dosage: 145 MG, QD
     Route: 048
     Dates: start: 2011
  23. INJECTAFER [Concomitant]
     Active Substance: FERRIC CARBOXYMALTOSE
     Indication: IRON DEFICIENCY ANAEMIA
     Dosage: 750 G, UNK
     Route: 042
     Dates: start: 20150505, end: 20150512
  24. PREVACID [Concomitant]
     Active Substance: LANSOPRAZOLE
     Indication: DYSPEPSIA
     Dosage: 30 MG, QD
     Route: 048
     Dates: start: 2005
  25. NORVASC [Concomitant]
     Active Substance: AMLODIPINE BESYLATE
     Indication: HYPERTENSION
     Dosage: 10 MG, QD
     Route: 048
     Dates: start: 2010
  26. DIOVAN [Concomitant]
     Active Substance: VALSARTAN
     Indication: HYPERTENSION
     Dosage: UNK
     Route: 048
     Dates: start: 2010
  27. BABY ASPIRIN [Concomitant]
     Active Substance: ASPIRIN
     Indication: CEREBROVASCULAR ACCIDENT PROPHYLAXIS
     Dosage: 81 MG, QD
     Route: 048
     Dates: start: 199908
  28. MOBIC [Concomitant]
     Active Substance: MELOXICAM
     Indication: MUSCULOSKELETAL PAIN
  29. IDELALISIB [Suspect]
     Active Substance: IDELALISIB
     Indication: CHRONIC LYMPHOCYTIC LEUKAEMIA
     Dosage: 150 MG, BID
     Route: 048
     Dates: start: 20150304, end: 201505
  30. RITUXIMAB [Suspect]
     Active Substance: RITUXIMAB
     Dosage: 930 MG, UNK
     Route: 042
     Dates: start: 20150428, end: 20150428
  31. MOBIC [Concomitant]
     Active Substance: MELOXICAM
     Indication: OSTEOARTHRITIS
     Dosage: 15 MG, QD
     Route: 048
     Dates: start: 20150512
  32. BENDAMUSTINE [Suspect]
     Active Substance: BENDAMUSTINE
     Dosage: 185 MG, UNK
     Route: 042
     Dates: start: 20150305, end: 20150305
  33. BENDAMUSTINE [Suspect]
     Active Substance: BENDAMUSTINE
     Dosage: 185 MG, UNK
     Route: 042
     Dates: start: 20150428, end: 20150428
  34. BENDAMUSTINE [Suspect]
     Active Substance: BENDAMUSTINE
     Dosage: 185 MG, UNK
     Route: 042
     Dates: start: 20150429, end: 20150429
  35. ALLOPURINOL. [Concomitant]
     Active Substance: ALLOPURINOL
     Dosage: 300 MG, QD
     Route: 048
     Dates: start: 20150210
  36. COPPER [Concomitant]
     Active Substance: COPPER
     Indication: NUTRITIONAL SUPPLEMENTATION
     Dosage: 100 MG, QD
     Route: 048
     Dates: start: 20150215
  37. CRANBERRY                          /01512301/ [Concomitant]
     Active Substance: CRANBERRY
     Dosage: 500 MG, QHS
     Route: 048
     Dates: start: 2005
  38. MECLIZINE [Concomitant]
     Active Substance: MECLIZINE HYDROCHLORIDE
     Indication: VERTIGO
     Dosage: 25 MG, PRN
     Route: 048
     Dates: start: 199908
  39. IRON [Concomitant]
     Active Substance: IRON
     Route: 048
     Dates: start: 20150324
  40. SUMATRIPTAN. [Concomitant]
     Active Substance: SUMATRIPTAN
     Dosage: UNK
     Route: 048
     Dates: start: 2013
  41. VALTREX [Concomitant]
     Active Substance: VALACYCLOVIR HYDROCHLORIDE
     Indication: MUCOSAL INFLAMMATION
     Dosage: 500 MG, QD
     Route: 048
     Dates: start: 20150317, end: 20150323
  42. POTASSIUM [Concomitant]
     Active Substance: POTASSIUM
     Indication: HYPOKALAEMIA
     Dosage: 20 MEQ, QD
     Route: 048
     Dates: start: 20150318
  43. INJECTAFER [Concomitant]
     Active Substance: FERRIC CARBOXYMALTOSE
     Route: 042
     Dates: start: 20150512, end: 20150512

REACTIONS (1)
  - Sepsis [Fatal]

NARRATIVE: CASE EVENT DATE: 20150515
